FAERS Safety Report 7505595-7 (Version None)
Quarter: 2011Q2

REPORT INFORMATION
  Report Type: 
  Country: None (occurrence: None)
  Receive Date: 20110526
  Receipt Date: 20110520
  Transmission Date: 20111010
  Serious: Yes (Other)
  Sender: FDA-Public Use
  Company Number: US-PFIZER INC-2011055202

PATIENT
  Sex: Male

DRUGS (1)
  1. SUTENT [Suspect]
     Indication: RENAL NEOPLASM
     Dosage: ONE TABLET (4 WEEKS ON, 2 WEEKS OFF)
     Route: 048

REACTIONS (1)
  - CEREBROVASCULAR ACCIDENT [None]
